FAERS Safety Report 24259177 (Version 3)
Quarter: 2024Q3

REPORT INFORMATION
  Report Type: Spontaneous
  Country: MX (occurrence: MX)
  Receive Date: 20240828
  Receipt Date: 20240925
  Transmission Date: 20241016
  Serious: Yes (Hospitalization, Other)
  Sender: CSL BEHRING
  Company Number: MX-BEH-2024177694

PATIENT
  Age: 29 Year
  Sex: Female
  Weight: 86 kg

DRUGS (1)
  1. HUMAN IMMUNOGLOBULIN G [Suspect]
     Active Substance: HUMAN IMMUNOGLOBULIN G
     Indication: Product used for unknown indication
     Dosage: UNK
     Route: 042
     Dates: start: 20240812

REACTIONS (3)
  - Sepsis [Recovered/Resolved]
  - Product contamination microbial [Unknown]
  - Aeromonas test positive [Unknown]

NARRATIVE: CASE EVENT DATE: 20240812
